FAERS Safety Report 8871414 (Version 1)
Quarter: 2012Q4

REPORT INFORMATION
  Report Type: Spontaneous
  Country: US (occurrence: None)
  Receive Date: 20121025
  Receipt Date: 20121025
  Transmission Date: 20130627
  Serious: Yes (Other)
  Sender: FDA-Public Use
  Company Number: 1456385

PATIENT
  Age: 70 Year
  Sex: Female
  Weight: 56.7 kg

DRUGS (3)
  1. CARBOPLATIN [Suspect]
     Indication: ESOPHAGEAL SQUAMOUS CELL CARCINOMA
  2. PACLITAXEL [Suspect]
     Indication: ESOPHAGEAL SQUAMOUS CELL CARCINOMA
  3. UNSPECIFIED INGREDIENT [Suspect]
     Indication: ESOPHAGEAL SQUAMOUS CELL CARCINOMA

REACTIONS (3)
  - Tuberculosis [None]
  - Odynophagia [None]
  - Pneumonia [None]
